FAERS Safety Report 13252972 (Version 1)
Quarter: 2017Q1

REPORT INFORMATION
  Report Type: Spontaneous
  Country: US (occurrence: US)
  Receive Date: 20170220
  Receipt Date: 20170220
  Transmission Date: 20170428
  Serious: Yes (Other)
  Sender: FDA-Public Use
  Company Number: US-ELI_LILLY_AND_COMPANY-US201608005978

PATIENT
  Age: 50 Year
  Sex: Female

DRUGS (1)
  1. CYMBALTA [Suspect]
     Active Substance: DULOXETINE HYDROCHLORIDE
     Indication: BACK PAIN
     Dosage: UNK, UNKNOWN
     Route: 065
     Dates: start: 201108, end: 201508

REACTIONS (15)
  - Agitation [Recovered/Resolved]
  - Aggression [Recovered/Resolved]
  - Paraesthesia [Recovered/Resolved]
  - Hyperaesthesia [Recovered/Resolved]
  - Confusional state [Recovered/Resolved]
  - Affect lability [Recovered/Resolved]
  - Diarrhoea [Recovered/Resolved]
  - Sensory disturbance [Recovered/Resolved]
  - Dysphoria [Recovered/Resolved]
  - Drug withdrawal syndrome [Recovered/Resolved]
  - Hyperhidrosis [Recovered/Resolved]
  - Suicidal ideation [Recovered/Resolved]
  - Irritability [Recovered/Resolved]
  - Insomnia [Recovered/Resolved]
  - Tinnitus [Recovered/Resolved]

NARRATIVE: CASE EVENT DATE: 201508
